FAERS Safety Report 5353393-5 (Version None)
Quarter: 2007Q2

REPORT INFORMATION
  Report Type: 
  Country: None (occurrence: None)
  Receive Date: 20070518
  Receipt Date: 20070403
  Transmission Date: 20071010
  Serious: No
  Sender: FDA-Public Use
  Company Number: TPA2007A00768

PATIENT
  Age: 52 Year
  Sex: Male
  Weight: 70.3075 kg

DRUGS (13)
  1. ROZEREM [Suspect]
     Indication: INSOMNIA
     Dosage: PER ORAL
     Route: 048
  2. AMBIEN CR [Suspect]
  3. LUNESTA [Suspect]
     Indication: INSOMNIA
     Dosage: SEE IMAGE
     Route: 048
     Dates: start: 20060101
  4. LUNESTA [Suspect]
     Indication: INSOMNIA
     Dosage: SEE IMAGE
     Route: 048
     Dates: start: 20060101
  5. KLONOPIN [Concomitant]
  6. XYREM [Concomitant]
  7. SONATA [Concomitant]
  8. ZOLPIDEM TARTRATE [Concomitant]
  9. GENOTROPIN [Concomitant]
  10. TESTOSTERONE [Concomitant]
  11. LEXAPRO [Concomitant]
  12. SYNTHROID [Concomitant]
  13. PROVIGIL [Concomitant]

REACTIONS (1)
  - MALAISE [None]
